FAERS Safety Report 7733129-0 (Version None)
Quarter: 2011Q3

REPORT INFORMATION
  Report Type: 
  Country: None (occurrence: None)
  Receive Date: 20110907
  Receipt Date: 20110901
  Transmission Date: 20111222
  Serious: No
  Sender: FDA-Public Use
  Company Number: US-PFIZER INC-2011204831

PATIENT
  Sex: Female
  Weight: 48.98 kg

DRUGS (2)
  1. PRISTIQ [Suspect]
     Indication: ANXIETY
  2. PRISTIQ [Suspect]
     Indication: PAIN
     Dosage: 50 MG, 1X/DAY
     Route: 048
     Dates: start: 20110701, end: 20110701

REACTIONS (5)
  - VISION BLURRED [None]
  - CONTUSION [None]
  - SEXUAL DYSFUNCTION [None]
  - FEELING ABNORMAL [None]
  - PANIC ATTACK [None]
